FAERS Safety Report 15887505 (Version 1)
Quarter: 2019Q1

REPORT INFORMATION
  Report Type: Report from Study
  Country: DE (occurrence: DE)
  Receive Date: 20190130
  Receipt Date: 20190130
  Transmission Date: 20190417
  Serious: Yes (Death, Hospitalization, Other)
  Sender: FDA-Public Use
  Company Number: DE-ACCORD-103479

PATIENT
  Age: 69 Year
  Sex: Female
  Weight: 64 kg

DRUGS (5)
  1. ANTRA [Suspect]
     Active Substance: OMEPRAZOLE
     Indication: OVARIAN CANCER
     Dosage: LAST DOSE PRIOR TO EVENT 26-SEP-2012
     Route: 048
  2. FORTECORTIN [Suspect]
     Active Substance: DEXAMETHASONE
     Indication: OVARIAN CANCER
     Dosage: LAST DOSE PRIOR TO EVENT 16-SEP-2012.
     Route: 048
  3. BEVACIZUMAB. [Suspect]
     Active Substance: BEVACIZUMAB
     Indication: OVARIAN CANCER
     Dosage: LAST DOSE PRIOR TO EVENT 14-SEP-2012
     Route: 042
  4. CARBOPLATIN. [Suspect]
     Active Substance: CARBOPLATIN
     Indication: OVARIAN CANCER
     Dosage: LAST DOSE PRIOR TO EVENT 14-SEP-2012
     Route: 042
  5. PACLITAXEL/PACLITAXEL LIPOSOME [Suspect]
     Active Substance: PACLITAXEL
     Indication: OVARIAN CANCER
     Dosage: LAST DOSE PRIOR TO EVENT 14-SEP-2012
     Route: 042

REACTIONS (10)
  - Vomiting [Unknown]
  - Focal dyscognitive seizures [Unknown]
  - Thrombosis [Recovered/Resolved]
  - Death [Fatal]
  - Arthralgia [Recovered/Resolved]
  - Pain [Unknown]
  - Renal failure [Unknown]
  - Joint swelling [Recovered/Resolved]
  - Bladder dysfunction [Unknown]
  - Parkinson^s disease [Unknown]

NARRATIVE: CASE EVENT DATE: 20120927
